FAERS Safety Report 16341495 (Version 3)
Quarter: 2019Q3

REPORT INFORMATION
  Report Type: Report from Study
  Country: LB (occurrence: LB)
  Receive Date: 20190522
  Receipt Date: 20190703
  Transmission Date: 20191004
  Serious: Yes (Life-Threatening, Other)
  Sender: FDA-Public Use
  Company Number: PHHY2019LB115452

PATIENT
  Age: 67 Year
  Sex: Male
  Weight: 85 kg

DRUGS (2)
  1. BURINEX [Concomitant]
     Active Substance: BUMETANIDE
     Indication: PRODUCT USED FOR UNKNOWN INDICATION
     Dosage: 5 MG, QD
     Route: 065
  2. ENTRESTO [Suspect]
     Active Substance: SACUBITRIL\VALSARTAN
     Indication: CARDIAC FAILURE
     Dosage: 200 MG (SACUBITRIL 97MG AND VALSARTAN 103MG) BID
     Route: 048
     Dates: start: 20190325, end: 20190516

REACTIONS (7)
  - Cardiac failure [Unknown]
  - Acute kidney injury [Unknown]
  - C-reactive protein increased [Unknown]
  - Dyspnoea [Unknown]
  - Blood creatinine increased [Unknown]
  - Blood potassium decreased [Unknown]
  - Oedema peripheral [Unknown]

NARRATIVE: CASE EVENT DATE: 20190510
